FAERS Safety Report 17589585 (Version 2)
Quarter: 2021Q2

REPORT INFORMATION
  Report Type: Spontaneous
  Country: US (occurrence: US)
  Receive Date: 20200327
  Receipt Date: 20210413
  Transmission Date: 20210716
  Serious: No
  Sender: FDA-Public Use
  Company Number: US-ALLERGAN-1924623US

PATIENT
  Age: 33 Year
  Sex: Female

DRUGS (4)
  1. BIRTH CONTROL [Concomitant]
     Active Substance: UNSPECIFIED INGREDIENT
     Indication: CONTRACEPTION
     Dosage: UNK
     Route: 065
  2. BOTOX COSMETIC [Concomitant]
     Active Substance: ONABOTULINUMTOXINA
     Dosage: UNK, SINGLE
     Dates: start: 201905, end: 201905
  3. LATISSE [Suspect]
     Active Substance: BIMATOPROST
     Indication: GROWTH OF EYELASHES
     Dosage: 1 GTT, QD
     Route: 061
     Dates: start: 201905
  4. MASCARA [Concomitant]
     Dosage: UNK

REACTIONS (12)
  - Erythema of eyelid [Unknown]
  - Hypersensitivity [Unknown]
  - Swelling of eyelid [Unknown]
  - Lacrimation increased [Recovered/Resolved]
  - Eyelid pain [Recovered/Resolved]
  - Wrong technique in product usage process [Unknown]
  - Ocular hyperaemia [Recovered/Resolved]
  - Incorrect dose administered [Unknown]
  - Eyelid exfoliation [Unknown]
  - Application site paraesthesia [Recovered/Resolved]
  - Eye discharge [Recovered/Resolved]
  - Eyelid margin crusting [Recovered/Resolved]

NARRATIVE: CASE EVENT DATE: 201905
